FAERS Safety Report 14362624 (Version 1)
Quarter: 2018Q1

REPORT INFORMATION
  Report Type: Spontaneous
  Country: US (occurrence: US)
  Receive Date: 20180105
  Receipt Date: 20180105
  Transmission Date: 20180509
  Serious: Yes (Other)
  Sender: FDA-Public Use
  Company Number: None

PATIENT
  Age: 24 Year
  Sex: Male
  Weight: 88.9 kg

DRUGS (1)
  1. RITUXAN [Suspect]
     Active Substance: RITUXIMAB
     Indication: MULTIPLE SCLEROSIS
     Dosage: ?          OTHER FREQUENCY:Q 2 WEEKS Q 6 MO.;?
     Route: 041
     Dates: start: 20170613, end: 20171214

REACTIONS (2)
  - Ear pruritus [None]
  - Throat irritation [None]

NARRATIVE: CASE EVENT DATE: 20171214
